FAERS Safety Report 18049150 (Version 6)
Quarter: 2020Q3

REPORT INFORMATION
  Report Type: Spontaneous
  Country: US (occurrence: US)
  Receive Date: 20200721
  Receipt Date: 20200921
  Transmission Date: 20201103
  Serious: No
  Sender: FDA-Public Use
  Company Number: US-PFIZER INC-2020275050

PATIENT
  Age: 67 Year
  Sex: Female

DRUGS (2)
  1. LATANOPROST. [Suspect]
     Active Substance: LATANOPROST
     Indication: GLAUCOMA
     Dosage: 2 DROP, 1X/DAY, (1 DROP IN EACH EYE AT BEDTIME)
     Route: 047
  2. LATANOPROST. [Suspect]
     Active Substance: LATANOPROST
     Dosage: 2 DROP, 1X/DAY, (1 DROP IN EACH EYE AT BEDTIME)
     Route: 047

REACTIONS (6)
  - Ocular hyperaemia [Recovering/Resolving]
  - Reaction to excipient [Recovering/Resolving]
  - Reaction to preservatives [Recovering/Resolving]
  - Eye pruritus [Recovering/Resolving]
  - Weight increased [Unknown]
  - Eye swelling [Recovering/Resolving]
